FAERS Safety Report 23885874 (Version 1)
Quarter: 2024Q2

REPORT INFORMATION
  Report Type: Spontaneous
  Country: FR (occurrence: FR)
  Receive Date: 20240522
  Receipt Date: 20240522
  Transmission Date: 20240716
  Serious: Yes (Hospitalization)
  Sender: FDA-Public Use
  Company Number: None

PATIENT
  Age: 16 Year
  Sex: Female

DRUGS (4)
  1. AMOXICILLIN [Suspect]
     Active Substance: AMOXICILLIN
     Indication: Poisoning deliberate
     Dosage: 12 CP
     Route: 048
     Dates: start: 20240409
  2. AZITHROMYCIN [Suspect]
     Active Substance: AZITHROMYCIN
     Indication: Poisoning deliberate
     Dosage: 6 CP
     Route: 048
     Dates: start: 20240409
  3. DOLIPRANE [Suspect]
     Active Substance: ACETAMINOPHEN
     Indication: Poisoning deliberate
     Dosage: 8 CP DE 1000 MG ET 5 CP DE 500 MG
     Route: 048
     Dates: start: 20240409
  4. PRAZEPAM [Suspect]
     Active Substance: PRAZEPAM
     Indication: Poisoning deliberate
     Dosage: 6 CP
     Route: 048
     Dates: start: 20240409

REACTIONS (3)
  - Headache [Recovered/Resolved]
  - Poisoning deliberate [Recovered/Resolved]
  - Gastrointestinal disorder [Recovered/Resolved]

NARRATIVE: CASE EVENT DATE: 20240409
